FAERS Safety Report 11072361 (Version 1)
Quarter: 2015Q2

REPORT INFORMATION
  Report Type: Spontaneous
  Country: US (occurrence: None)
  Receive Date: 20150427
  Receipt Date: 20150427
  Transmission Date: 20150821
  Serious: Yes (Life-Threatening)
  Sender: FDA-Public Use
  Company Number: None

PATIENT
  Age: 1 Year
  Sex: Male
  Weight: 8.7 kg

DRUGS (1)
  1. MIDAZOLAM [Suspect]
     Active Substance: MIDAZOLAM\MIDAZOLAM HYDROCHLORIDE
     Indication: SEIZURE
     Dosage: MIDAZOLAM 5MG, ONCE, INTRAMUSCULAR
     Route: 030
     Dates: start: 20140811

REACTIONS (1)
  - Hypoxia [None]

NARRATIVE: CASE EVENT DATE: 20140811
